FAERS Safety Report 8443638-7 (Version None)
Quarter: 2012Q2

REPORT INFORMATION
  Report Type: 
  Country: None (occurrence: None)
  Receive Date: 20120618
  Receipt Date: 20120608
  Transmission Date: 20120825
  Serious: Yes (Other)
  Sender: FDA-Public Use
  Company Number: US-JNJFOC-20120605006

PATIENT
  Sex: Female

DRUGS (2)
  1. REMICADE [Suspect]
     Indication: PSORIATIC ARTHROPATHY
     Route: 042
     Dates: start: 20110101
  2. REMICADE [Suspect]
     Route: 042
     Dates: start: 20120601

REACTIONS (3)
  - INFUSION RELATED REACTION [None]
  - BLINDNESS TRANSIENT [None]
  - HEADACHE [None]
